FAERS Safety Report 14326762 (Version 2)
Quarter: 2018Q1

REPORT INFORMATION
  Report Type: Spontaneous
  Country: DE (occurrence: DE)
  Receive Date: 20171227
  Receipt Date: 20180214
  Transmission Date: 20180509
  Serious: Yes (Other)
  Sender: FDA-Public Use
  Company Number: DE-THE MEDICINES COMPANY-DE-MDCO-17-00580

PATIENT

DRUGS (1)
  1. ANGIOX [Suspect]
     Active Substance: BIVALIRUDIN
     Indication: PRODUCT USED FOR UNKNOWN INDICATION
     Dosage: NOT REPORTED
     Route: 042

REACTIONS (3)
  - Product contamination [Unknown]
  - Hypertension [Unknown]
  - Tachyarrhythmia [Unknown]
